FAERS Safety Report 5781576-9 (Version None)
Quarter: 2008Q2

REPORT INFORMATION
  Report Type: 
  Country: None (occurrence: None)
  Receive Date: 20080623
  Receipt Date: 20080623
  Transmission Date: 20081010
  Serious: No
  Sender: FDA-Public Use
  Company Number: None

PATIENT
  Sex: Male

DRUGS (2)
  1. HEPARIN [Suspect]
     Indication: ANTICOAGULANT THERAPY
     Dosage: INTRA-OP
     Dates: start: 20080609, end: 20080609
  2. HEPARIN [Suspect]

REACTIONS (1)
  - DRUG INEFFECTIVE [None]
